FAERS Safety Report 11171994 (Version 1)
Quarter: 2015Q2

REPORT INFORMATION
  Report Type: Spontaneous
  Country: US (occurrence: None)
  Receive Date: 20150605
  Receipt Date: 20150605
  Transmission Date: 20150821
  Serious: Yes (Life-Threatening, Disabling)
  Sender: FDA-Public Use
  Company Number: None

PATIENT
  Age: 50 Year
  Sex: Female
  Weight: 86.18 kg

DRUGS (6)
  1. AMITRIPTYLINE [Suspect]
     Active Substance: AMITRIPTYLINE
     Indication: FIBROMYALGIA
     Dosage: 2-4 AT BEDTIME TAKEN BY M OUTH
     Route: 048
     Dates: start: 20050601, end: 20150603
  2. AMITRIPTYLINE [Suspect]
     Active Substance: AMITRIPTYLINE
     Indication: MIGRAINE PROPHYLAXIS
     Dosage: 2-4 AT BEDTIME TAKEN BY M OUTH
     Route: 048
     Dates: start: 20050601, end: 20150603
  3. HIGH BLOOD PRESSURE [Concomitant]
  4. HEART RATE MEDICINE [Concomitant]
  5. ESCITALOPRAM [Suspect]
     Active Substance: ESCITALOPRAM OXALATE
     Indication: MIGRAINE PROPHYLAXIS
     Dosage: 2 TWICE DAILY TAKEN BY MOUTH
     Route: 048
     Dates: start: 20050601, end: 20150603
  6. ESCITALOPRAM [Suspect]
     Active Substance: ESCITALOPRAM OXALATE
     Indication: FIBROMYALGIA
     Dosage: 2 TWICE DAILY TAKEN BY MOUTH
     Route: 048
     Dates: start: 20050601, end: 20150603

REACTIONS (17)
  - Vision blurred [None]
  - Panic reaction [None]
  - Back pain [None]
  - Drug monitoring procedure not performed [None]
  - Chest pain [None]
  - Anxiety [None]
  - Confusional state [None]
  - Dizziness postural [None]
  - Tachycardia [None]
  - Cognitive disorder [None]
  - Arthralgia [None]
  - Impaired work ability [None]
  - Stress [None]
  - Myalgia [None]
  - Memory impairment [None]
  - Dementia [None]
  - Drug prescribing error [None]

NARRATIVE: CASE EVENT DATE: 20141119
